FAERS Safety Report 23965611 (Version 4)
Quarter: 2025Q3

REPORT INFORMATION
  Report Type: Spontaneous
  Country: JP (occurrence: JP)
  Receive Date: 20240612
  Receipt Date: 20250918
  Transmission Date: 20251020
  Serious: Yes (Other)
  Sender: BRISTOL-MYERS SQUIBB COMPANY
  Company Number: JP-BRISTOL-MYERS SQUIBB COMPANY-2024-093965

PATIENT
  Age: 77 Year
  Sex: Male

DRUGS (4)
  1. YERVOY [Suspect]
     Active Substance: IPILIMUMAB
     Indication: Renal cell carcinoma
     Dates: start: 202011, end: 202101
  2. OPDIVO [Suspect]
     Active Substance: NIVOLUMAB
     Indication: Renal cell carcinoma
     Dates: start: 202011, end: 202101
  3. OPDIVO [Suspect]
     Active Substance: NIVOLUMAB
  4. OPDIVO [Suspect]
     Active Substance: NIVOLUMAB
     Dates: start: 202107, end: 202301

REACTIONS (1)
  - Cerebral infarction [Unknown]
